FAERS Safety Report 18323805 (Version 2)
Quarter: 2020Q3

REPORT INFORMATION
  Report Type: Spontaneous
  Country: NO (occurrence: NO)
  Receive Date: 20200928
  Receipt Date: 20200930
  Transmission Date: 20201103
  Serious: Yes (Hospitalization, Disabling, Other)
  Sender: FDA-Public Use
  Company Number: NO-BRISTOL-MYERS SQUIBB COMPANY-BMS-2020-076029

PATIENT
  Age: 78 Year
  Sex: Female

DRUGS (1)
  1. YERVOY [Suspect]
     Active Substance: IPILIMUMAB
     Indication: METASTATIC MALIGNANT MELANOMA
     Dosage: 3 MG/KG
     Route: 042

REACTIONS (2)
  - Blindness [Recovered/Resolved with Sequelae]
  - Conjunctivitis [Recovered/Resolved with Sequelae]
